FAERS Safety Report 9167081 (Version 1)
Quarter: 2013Q1

REPORT INFORMATION
  Report Type: Spontaneous
  Country: US (occurrence: None)
  Receive Date: 20130228
  Receipt Date: 20130228
  Transmission Date: 20140127
  Serious: Yes (Hospitalization)
  Sender: FDA-Public Use
  Company Number: A1013868A

PATIENT
  Age: 48 Year
  Sex: Male

DRUGS (6)
  1. VENLAFASXINE HYDROCHLORIDE CAPSULES MODIFIED RELEASE (GENERIC) (VENLAFAXINE HYDROCHLORIDE) [Suspect]
  2. BUPROPION HYDROCHLORIDE TABLET - CONTROLLED RELEASE (GENERIC) (BUPROPION HYDROCHLORIDE) [Suspect]
     Indication: ANXIETY
  3. CLONAZEPAM (FORMULATION UNKNOWN) (GENERIC) (CLONAZEPAM) [Suspect]
  4. HYDROXYZINE [Concomitant]
  5. METOPROLOL [Concomitant]
  6. LORAZEPAM [Concomitant]

REACTIONS (12)
  - Psychotic disorder [None]
  - Abnormal behaviour [None]
  - Confusional state [None]
  - Restlessness [None]
  - Tremor [None]
  - Anxiety [None]
  - Depression [None]
  - Toxicity to various agents [None]
  - Agitation [None]
  - Drug withdrawal syndrome [None]
  - Hyperhidrosis [None]
  - Nervousness [None]
